FAERS Safety Report 19495705 (Version 1)
Quarter: 2021Q3

REPORT INFORMATION
  Report Type: Spontaneous
  Country: DK (occurrence: DK)
  Receive Date: 20210706
  Receipt Date: 20210706
  Transmission Date: 20211014
  Serious: Yes (Hospitalization)
  Sender: FDA-Public Use
  Company Number: DK-TEVA-2021-DK-1929030

PATIENT
  Age: 74 Year
  Sex: Male
  Weight: 86 kg

DRUGS (7)
  1. LOSARTANKALIUM ^TEVA^ [Suspect]
     Active Substance: LOSARTAN
     Indication: HYPERTENSION
     Dosage: STRENGTH: 100 MG
     Route: 048
     Dates: start: 20210417, end: 20210417
  2. METOPROLOL TARTRATE. [Concomitant]
     Active Substance: METOPROLOL TARTRATE
     Indication: HYPERTENSION
     Dates: start: 20210324
  3. CORODIL COMP [Concomitant]
     Active Substance: ENALAPRIL MALEATE\HYDROCHLOROTHIAZIDE
     Indication: HYPERTENSION
     Dates: start: 20130726
  4. AMLODIPINE [Concomitant]
     Active Substance: AMLODIPINE BESYLATE
     Indication: HYPERTENSION
     Dates: start: 20201205
  5. ATORVASTATIN ^1A FARMA^ [Concomitant]
     Indication: HYPERCHOLESTEROLAEMIA
     Dates: start: 20190801
  6. PANTOPRAZOL ^KRKA^ [Concomitant]
     Indication: GASTRIC ULCER
     Dates: start: 20200206
  7. IBUMETIN [Concomitant]
     Active Substance: IBUPROFEN
     Indication: PAIN
     Dates: start: 20200825

REACTIONS (5)
  - Swollen tongue [Unknown]
  - Throat irritation [Unknown]
  - Hypersensitivity [Recovered/Resolved]
  - Dysphonia [Unknown]
  - Angioedema [Recovered/Resolved]

NARRATIVE: CASE EVENT DATE: 20210417
